FAERS Safety Report 9710053 (Version 1)
Quarter: 2013Q4

REPORT INFORMATION
  Report Type: Report from Study
  Country: US (occurrence: US)
  Receive Date: 20131126
  Receipt Date: 20131126
  Transmission Date: 20140711
  Serious: Yes (Other)
  Sender: FDA-Public Use
  Company Number: US-CELGENEUS-163-C4047-13113891

PATIENT
  Age: 79 Year
  Sex: Female
  Weight: 68 kg

DRUGS (11)
  1. CC-4047 [Suspect]
     Indication: PLASMA CELL MYELOMA
     Dosage: 4 MILLIGRAM
     Route: 048
     Dates: start: 20100611
  2. CC-4047 [Suspect]
     Dosage: 2 MILLIGRAM
     Route: 048
     Dates: start: 201204
  3. CC-4047 [Suspect]
     Dosage: 2 MILLIGRAM
     Route: 048
     Dates: start: 20131115
  4. REVLIMID [Suspect]
     Indication: PLASMA CELL MYELOMA
     Route: 048
  5. DEXAMETHASONE [Suspect]
     Indication: PLASMA CELL MYELOMA
     Route: 065
  6. DEXAMETHASONE [Suspect]
     Route: 065
     Dates: start: 20100611, end: 201204
  7. ASPIRIN [Concomitant]
     Indication: THROMBOSIS
     Dosage: 325 MILLIGRAM
     Route: 048
     Dates: start: 20100611
  8. ASPIRIN [Concomitant]
     Indication: PROPHYLAXIS
  9. SYNTHROID [Concomitant]
     Indication: THYROID DISORDER
     Dosage: 50 MICROGRAM
     Route: 048
     Dates: start: 20110331
  10. PREGABALIN [Concomitant]
     Indication: POST HERPETIC NEURALGIA
     Dosage: 450 MILLIGRAM
     Route: 048
     Dates: start: 2007
  11. BENICAR [Concomitant]
     Indication: HYPERTENSION
     Dosage: 40 MILLIGRAM
     Route: 048
     Dates: start: 20130420

REACTIONS (1)
  - Invasive ductal breast carcinoma [Not Recovered/Not Resolved]
